FAERS Safety Report 12784614 (Version 1)
Quarter: 2016Q3

REPORT INFORMATION
  Report Type: Spontaneous
  Country: FR (occurrence: FR)
  Receive Date: 20160927
  Receipt Date: 20160927
  Transmission Date: 20161109
  Serious: Yes (Hospitalization)
  Sender: FDA-Public Use
  Company Number: PHHY2016FR130639

PATIENT
  Age: 77 Year
  Sex: Female

DRUGS (9)
  1. AMLODIPINE [Concomitant]
     Active Substance: AMLODIPINE BESYLATE
     Indication: HYPERTENSION
     Dosage: UNK
     Route: 048
  2. JANUMET [Concomitant]
     Active Substance: METFORMIN HYDROCHLORIDE\SITAGLIPTIN PHOSPHATE
     Indication: TYPE 2 DIABETES MELLITUS
     Dosage: 1 DF, BID (IN THE MORNING AND IN THE EVENING)
     Route: 048
  3. PREVISCAN [Concomitant]
     Active Substance: FLUINDIONE
     Indication: ATRIAL FIBRILLATION
     Dosage: 1.25 DF, QD
     Route: 048
     Dates: start: 201505
  4. ESIDREX [Suspect]
     Active Substance: HYDROCHLOROTHIAZIDE
     Dosage: 0.5 DF, UNK
     Route: 048
     Dates: start: 20160318
  5. ESIDREX [Suspect]
     Active Substance: HYDROCHLOROTHIAZIDE
     Indication: HYPERTENSION
     Route: 048
     Dates: start: 20160316, end: 20160316
  6. RAMIPRIL. [Suspect]
     Active Substance: RAMIPRIL
     Dosage: 1.25 MG
     Route: 048
     Dates: start: 20160318
  7. PRAVASTATIN SODIUM. [Concomitant]
     Active Substance: PRAVASTATIN SODIUM
     Indication: DYSLIPIDAEMIA
     Dosage: 20 MG, QD IN THE EVENING
     Route: 048
  8. SOTALOL. [Suspect]
     Active Substance: SOTALOL
     Indication: ATRIAL FIBRILLATION
     Dosage: 1 DF, BID (IN THE MORNING AND IN THE EVENING)
     Route: 048
     Dates: start: 201505, end: 20160316
  9. RAMIPRIL. [Suspect]
     Active Substance: RAMIPRIL
     Indication: ISCHAEMIC STROKE
     Dosage: QD (IN THE EVENING)
     Route: 048
     Dates: end: 20160316

REACTIONS (4)
  - Bradycardia [Recovered/Resolved]
  - Acute kidney injury [Recovered/Resolved]
  - Hyperkalaemia [Recovered/Resolved]
  - Atrioventricular block complete [Recovered/Resolved]

NARRATIVE: CASE EVENT DATE: 20160316
